FAERS Safety Report 9651489 (Version 3)
Quarter: 2014Q4

REPORT INFORMATION
  Report Type: Spontaneous
  Country: FR (occurrence: FR)
  Receive Date: 20131029
  Receipt Date: 20141020
  Transmission Date: 20150529
  Serious: Yes (Hospitalization)
  Sender: FDA-Public Use
  Company Number: FR-SA-2013SA106907

PATIENT
  Age: 49 Year
  Sex: Female
  Weight: 52 kg

DRUGS (8)
  1. BACLOFENE ZENTIVA [Suspect]
     Active Substance: BACLOFEN
     Indication: ALCOHOLISM
     Route: 048
     Dates: start: 201303
  2. BACLOFENE ZENTIVA [Suspect]
     Active Substance: BACLOFEN
     Indication: ALCOHOLISM
     Route: 048
     Dates: start: 201308
  3. BACLOFENE ZENTIVA [Suspect]
     Active Substance: BACLOFEN
     Indication: ALCOHOLISM
     Dosage: 2TALETSMORNING, 1 TABLET AT NOON AND 2 TABLETS EVENING
     Route: 048
  4. BACLOFENE ZENTIVA [Suspect]
     Active Substance: BACLOFEN
     Indication: ALCOHOLISM
     Dosage: 4 TABLETS MORNING, NOON AND EVENING
     Route: 048
  5. BACLOFENE ZENTIVA [Suspect]
     Active Substance: BACLOFEN
     Indication: ALCOHOLISM
     Route: 048
     Dates: start: 201302
  6. STILNOX [Suspect]
     Active Substance: ZOLPIDEM TARTRATE
     Indication: INSOMNIA
     Route: 048
  7. MIANSERINE [Suspect]
     Active Substance: MIANSERIN HYDROCHLORIDE
     Indication: DEPRESSION
     Route: 048
  8. XANAX [Suspect]
     Active Substance: ALPRAZOLAM
     Indication: DEPRESSION
     Route: 048

REACTIONS (8)
  - Confusional state [Recovered/Resolved]
  - Vision blurred [Recovered/Resolved]
  - Fall [Recovered/Resolved]
  - Paraesthesia [Recovered/Resolved]
  - Subcutaneous haematoma [Recovered/Resolved]
  - Asthenia [Recovered/Resolved]
  - Feeling drunk [Recovered/Resolved]
  - Off label use [Unknown]

NARRATIVE: CASE EVENT DATE: 20130906
